FAERS Safety Report 10026012 (Version 2)
Quarter: 2014Q2

REPORT INFORMATION
  Report Type: Spontaneous
  Country: GB (occurrence: None)
  Receive Date: 20140318
  Receipt Date: 20140516
  Transmission Date: 20141212
  Serious: Yes (Hospitalization)
  Sender: FDA-Public Use
  Company Number: 1403-0502

PATIENT
  Age: 69 Year
  Sex: Male

DRUGS (1)
  1. EYLEA (AFLIBERCEPT) (SOLUTION FOR INJECTION) (AFLIBERCEPT) [Suspect]
     Indication: RETINAL VEIN OCCLUSION
     Dosage: 2MG/0.05CC, INTRAOCULAR
     Route: 031
     Dates: start: 20140303

REACTIONS (3)
  - Headache [None]
  - Confusional state [None]
  - Chest pain [None]
